FAERS Safety Report 12293819 (Version 1)
Quarter: 2016Q2

REPORT INFORMATION
  Report Type: Spontaneous
  Country: US (occurrence: US)
  Receive Date: 20160421
  Receipt Date: 20160421
  Transmission Date: 20160815
  Serious: No
  Sender: FDA-Public Use
  Company Number: US-009507513-1604USA013532

PATIENT
  Age: 63 Year
  Sex: Male

DRUGS (4)
  1. BELSOMRA [Suspect]
     Active Substance: SUVOREXANT
     Dosage: UNK
     Route: 048
     Dates: start: 201510, end: 2015
  2. ZOCOR [Concomitant]
     Active Substance: SIMVASTATIN
  3. NEXIUM [Concomitant]
     Active Substance: ESOMEPRAZOLE MAGNESIUM
  4. BELSOMRA [Suspect]
     Active Substance: SUVOREXANT
     Indication: INSOMNIA
     Dosage: 10 MG, QD
     Route: 048
     Dates: start: 201604

REACTIONS (3)
  - Abnormal dreams [Not Recovered/Not Resolved]
  - Drug ineffective [Not Recovered/Not Resolved]
  - Somnolence [Not Recovered/Not Resolved]

NARRATIVE: CASE EVENT DATE: 201604
